FAERS Safety Report 20214114 (Version 5)
Quarter: 2025Q3

REPORT INFORMATION
  Report Type: Report from Study
  Country: US (occurrence: US)
  Receive Date: 20211221
  Receipt Date: 20250822
  Transmission Date: 20251021
  Serious: Yes (Hospitalization, Other)
  Sender: SUNOVION
  Company Number: US-MYOVANT SCIENCES IRELAND LIMITED-2021MYSCI1200347

PATIENT
  Age: 56 Year
  Sex: Male

DRUGS (16)
  1. ORGOVYX [Suspect]
     Active Substance: RELUGOLIX
     Indication: Prostate cancer
     Dosage: 360 MILLIGRAM, ONE TIME DOSE
     Route: 048
     Dates: start: 20211001, end: 20211001
  2. ORGOVYX [Suspect]
     Active Substance: RELUGOLIX
     Dosage: 120 MILLIGRAM, QD
     Route: 048
     Dates: start: 20211002, end: 20211206
  3. ORGOVYX [Suspect]
     Active Substance: RELUGOLIX
  4. ORGOVYX [Suspect]
     Active Substance: RELUGOLIX
     Route: 048
  5. ZYTIGA [Concomitant]
     Active Substance: ABIRATERONE ACETATE
     Indication: Product used for unknown indication
  6. ADVIL [Concomitant]
     Active Substance: IBUPROFEN
  7. FLUTICASONE [Concomitant]
     Active Substance: FLUTICASONE
     Route: 045
  8. GABAPENTIN [Concomitant]
     Active Substance: GABAPENTIN
  9. LEVOTHYROXINE SODIUM [Concomitant]
     Active Substance: LEVOTHYROXINE SODIUM
  10. OMEGA 3 [Concomitant]
     Active Substance: CAPSAICIN
  11. PANTOPRAZOLE [Concomitant]
     Active Substance: PANTOPRAZOLE
  12. LUPRON [Concomitant]
     Active Substance: LEUPROLIDE ACETATE
  13. VALSARTAN AND HYDROCHLOROTHIAZIDE [Concomitant]
     Active Substance: HYDROCHLOROTHIAZIDE\VALSARTAN
  14. VITAMIN D [Concomitant]
     Active Substance: VITAMIN D NOS
  15. SERTRALINE [Concomitant]
     Active Substance: SERTRALINE HYDROCHLORIDE
  16. NALOXONE [Concomitant]
     Active Substance: NALOXONE

REACTIONS (12)
  - Suicide attempt [Unknown]
  - Suicidal ideation [Recovering/Resolving]
  - Burning sensation [Unknown]
  - Depressed mood [Unknown]
  - Decreased activity [Unknown]
  - Insomnia [Unknown]
  - Night sweats [Recovering/Resolving]
  - Hot flush [Recovering/Resolving]
  - Urticaria [Recovering/Resolving]
  - Middle insomnia [Unknown]
  - Headache [Unknown]
  - Incorrect dose administered [Recovered/Resolved]
